FAERS Safety Report 21850118 (Version 2)
Quarter: 2023Q1

REPORT INFORMATION
  Report Type: Spontaneous
  Country: CA (occurrence: CA)
  Receive Date: 20230111
  Receipt Date: 20230119
  Transmission Date: 20230417
  Serious: Yes (Life-Threatening, Hospitalization)
  Sender: FDA-Public Use
  Company Number: CA-002147023-NVSC2023CA005722

PATIENT
  Age: 16 Year
  Sex: Male
  Weight: 39 kg

DRUGS (2)
  1. DEFERASIROX [Suspect]
     Active Substance: DEFERASIROX
     Indication: Thalassaemia
     Dosage: 20 MG/KG, QD (1 EVERY 1 DAYS)
     Route: 048
  2. FERRIPROX [Suspect]
     Active Substance: DEFERIPRONE
     Indication: Thalassaemia
     Dosage: 95 MG/KG, QD (1 EVERY 1 DAYS)
     Route: 048

REACTIONS (2)
  - Haemosiderosis [Recovered/Resolved]
  - Pancreatitis [Recovered/Resolved]
